FAERS Safety Report 23913861 (Version 2)
Quarter: 2024Q2

REPORT INFORMATION
  Report Type: Spontaneous
  Country: US (occurrence: None)
  Receive Date: 20240529
  Receipt Date: 20240529
  Transmission Date: 20240716
  Serious: Yes (Hospitalization, Other)
  Sender: FDA-Public Use
  Company Number: US-Unichem Pharmaceuticals (USA) Inc-UCM202405-000611

PATIENT
  Age: 50 Year
  Sex: Female

DRUGS (1)
  1. CHLORTHALIDONE [Suspect]
     Active Substance: CHLORTHALIDONE
     Indication: Product used for unknown indication
     Dosage: UNKNOWN

REACTIONS (3)
  - Seizure [Unknown]
  - Acute kidney injury [Recovered/Resolved]
  - Hyponatraemia [Recovered/Resolved]
